FAERS Safety Report 14737919 (Version 4)
Quarter: 2018Q3

REPORT INFORMATION
  Report Type: Spontaneous
  Country: US (occurrence: US)
  Receive Date: 20180409
  Receipt Date: 20180719
  Transmission Date: 20181010
  Serious: Yes (Hospitalization)
  Sender: FDA-Public Use
  Company Number: US-ELI_LILLY_AND_COMPANY-US201804002400

PATIENT
  Age: 69 Year
  Sex: Female

DRUGS (3)
  1. ADCIRCA [Suspect]
     Active Substance: TADALAFIL
     Indication: PRODUCT USED FOR UNKNOWN INDICATION
     Dosage: 20 MG, UNKNOWN
     Route: 065
     Dates: start: 20180324
  2. LETAIRIS [Suspect]
     Active Substance: AMBRISENTAN
     Indication: PRODUCT USED FOR UNKNOWN INDICATION
     Dosage: 5 MG, UNKNOWN
     Route: 065
     Dates: start: 20180324
  3. LETAIRIS [Suspect]
     Active Substance: AMBRISENTAN
     Dosage: 10 MG, UNKNOWN
     Route: 065

REACTIONS (16)
  - Erythema [Recovered/Resolved]
  - Malaise [Recovered/Resolved]
  - Gait inability [Recovering/Resolving]
  - Peripheral swelling [Recovering/Resolving]
  - Sleep apnoea syndrome [Not Recovered/Not Resolved]
  - Heart rate increased [Not Recovered/Not Resolved]
  - Speech disorder [Recovering/Resolving]
  - Eye pain [Recovered/Resolved]
  - Insomnia [Recovered/Resolved]
  - Dyspnoea [Recovering/Resolving]
  - Feeling abnormal [Recovered/Resolved]
  - Fluid retention [Recovering/Resolving]
  - Abdominal distension [Recovered/Resolved]
  - Vision blurred [Recovered/Resolved]
  - Abdominal pain upper [Recovered/Resolved]
  - Cardiac failure [Recovering/Resolving]

NARRATIVE: CASE EVENT DATE: 20180324
